FAERS Safety Report 23775365 (Version 1)
Quarter: 2024Q2

REPORT INFORMATION
  Report Type: Report from Study
  Country: FR (occurrence: FR)
  Receive Date: 20240423
  Receipt Date: 20240423
  Transmission Date: 20240716
  Serious: Yes (Hospitalization, Other)
  Sender: FDA-Public Use
  Company Number: FR-MIRATI-MT2024PM06044

PATIENT
  Sex: Male
  Weight: 70 kg

DRUGS (10)
  1. KRAZATI [Suspect]
     Active Substance: ADAGRASIB
     Indication: Non-small cell lung cancer
     Dosage: 600 MG, BID
     Route: 048
     Dates: start: 20231101, end: 20231126
  2. KRAZATI [Suspect]
     Active Substance: ADAGRASIB
     Indication: Adenocarcinoma
     Dosage: 400 MG, BID
     Route: 048
  3. XANAX [Concomitant]
     Active Substance: ALPRAZOLAM
     Route: 048
  4. LOPERAMIDE [Concomitant]
     Active Substance: LOPERAMIDE
     Route: 048
  5. METOCLOPRAMIDE [Concomitant]
     Active Substance: METOCLOPRAMIDE
  6. ZOPICLONE [Concomitant]
     Active Substance: ZOPICLONE
  7. NICORETTE [Concomitant]
     Active Substance: NICOTINE
  8. PROTHIADEN [Concomitant]
     Active Substance: DOTHIEPIN HYDROCHLORIDE
  9. DOLIPRANE [Concomitant]
     Active Substance: ACETAMINOPHEN
  10. NICOPATCH [Concomitant]
     Active Substance: NICOTINE

REACTIONS (7)
  - Hepatic cytolysis [Recovered/Resolved]
  - General physical health deterioration [Recovered/Resolved]
  - Somnolence [Recovering/Resolving]
  - Decreased appetite [Recovering/Resolving]
  - Dehydration [Recovering/Resolving]
  - Muscular weakness [Recovering/Resolving]
  - Dizziness [Recovering/Resolving]

NARRATIVE: CASE EVENT DATE: 20231116
